FAERS Safety Report 21580683 (Version 6)
Quarter: 2022Q4

REPORT INFORMATION
  Report Type: Spontaneous
  Country: US (occurrence: US)
  Receive Date: 20221111
  Receipt Date: 20221226
  Transmission Date: 20230112
  Serious: Yes (Hospitalization, Other)
  Sender: FDA-Public Use
  Company Number: US-JNJFOC-20221112894

PATIENT
  Age: 67 Year
  Sex: Female
  Weight: 85.9 kg

DRUGS (3)
  1. OPSUMIT [Suspect]
     Active Substance: MACITENTAN
     Indication: Product used for unknown indication
     Route: 048
  2. VELETRI [Suspect]
     Active Substance: EPOPROSTENOL
     Indication: Pulmonary arterial hypertension
     Route: 042
  3. ADEMPAS [Concomitant]
     Active Substance: RIOCIGUAT

REACTIONS (11)
  - Basedow^s disease [Unknown]
  - Pharyngitis [Unknown]
  - Chest pain [Unknown]
  - Diarrhoea [Unknown]
  - Pneumonia [Recovering/Resolving]
  - Seasonal allergy [Unknown]
  - Malaise [Unknown]
  - Dizziness [Unknown]
  - Device leakage [Unknown]
  - Underdose [Unknown]
  - Dyspnoea [Unknown]

NARRATIVE: CASE EVENT DATE: 20221208
